FAERS Safety Report 15126115 (Version 19)
Quarter: 2020Q2

REPORT INFORMATION
  Report Type: Report from Study
  Country: PL (occurrence: PL)
  Receive Date: 20180710
  Receipt Date: 20200605
  Transmission Date: 20200713
  Serious: Yes (Hospitalization)
  Sender: FDA-Public Use
  Company Number: PL-ROCHE-2144064

PATIENT
  Age: 67 Year
  Sex: Male
  Weight: 100.8 kg

DRUGS (30)
  1. ATEZOLIZUMAB. [Suspect]
     Active Substance: ATEZOLIZUMAB
     Indication: PLASMA CELL MYELOMA
     Dosage: DAY 1 AND DAY 15 OF EACH 28-DAY CYCLE?ON 19/JUN/2018, THE PATIENT RECEIVED THE MOST RECENT DOSE OF A
     Route: 042
     Dates: start: 20180605
  2. VENETOCLAX. [Suspect]
     Active Substance: VENETOCLAX
     Indication: PLASMA CELL MYELOMA
     Dosage: DAYS 1-28 OF EACH 28-DAY CYCLE?ON 22/JUN/2018 AND 19/JUN/2018, THE PATIENT RECEIVED THE MOST RECENT
     Route: 048
     Dates: start: 20180605
  3. CYCLONAMINE [Concomitant]
     Active Substance: ETHAMSYLATE
     Route: 048
     Dates: start: 20180731, end: 20180802
  4. HEVIRAN [ACICLOVIR] [Concomitant]
     Indication: HERPES ZOSTER
     Route: 048
     Dates: start: 20180605
  5. OXYCORT [HYDROCORTISONE;HYDROXYTETRACAINE] [Concomitant]
     Indication: SEBORRHOEA
     Route: 062
     Dates: start: 20180614, end: 20180717
  6. LOPERAMID [Concomitant]
     Active Substance: LOPERAMIDE
     Indication: DIARRHOEA
     Route: 048
     Dates: start: 20180605, end: 20180605
  7. DALACIN T [Concomitant]
     Active Substance: CLINDAMYCIN PHOSPHATE
     Indication: SEBORRHOEA
     Route: 062
     Dates: start: 20180614, end: 20180717
  8. COBIMETINIB. [Suspect]
     Active Substance: COBIMETINIB
     Dosage: THE PATIENT RECEIVED THE LAST DOSE OF COBIMETINIB, 40 MG, PRIOR TO THE ADVERSE EVENT ONSET.
     Route: 048
  9. HEVIRAN [ACICLOVIR] [Concomitant]
     Indication: PROPHYLAXIS
     Route: 048
     Dates: start: 20180828, end: 20180912
  10. HEVIRAN [ACICLOVIR] [Concomitant]
     Route: 048
     Dates: start: 20180918, end: 20181002
  11. ABASAGLAR [Concomitant]
     Active Substance: INSULIN GLARGINE
     Indication: DIABETES MELLITUS
     Route: 058
     Dates: start: 2008
  12. KALIPOZ [Concomitant]
     Active Substance: POTASSIUM CHLORIDE
     Indication: HYPOKALAEMIA
     Route: 048
     Dates: start: 20180624, end: 20180626
  13. ENCORTON [PREDNISONE] [Concomitant]
     Active Substance: PREDNISONE
     Indication: DECREASED APPETITE
     Route: 048
     Dates: start: 20180731, end: 20180802
  14. HYPLAFIN [Concomitant]
     Indication: BENIGN PROSTATIC HYPERPLASIA
     Route: 048
     Dates: start: 2011
  15. HEVIRAN [ACICLOVIR] [Concomitant]
     Route: 048
     Dates: start: 20180903
  16. LOPERAMID [Concomitant]
     Active Substance: LOPERAMIDE
     Route: 048
     Dates: start: 20180607, end: 20180607
  17. ROZEX [METRONIDAZOLE] [Concomitant]
     Indication: SEBORRHOEA
     Route: 062
     Dates: start: 20180614, end: 20180717
  18. CAPTOPRILUM [Concomitant]
     Indication: HYPERTENSION
     Route: 048
     Dates: start: 20180624, end: 20180624
  19. HEVIRAN [ACICLOVIR] [Concomitant]
     Route: 042
     Dates: start: 20180913, end: 20180917
  20. BISEPTOL [Concomitant]
     Active Substance: SULFAMETHOXAZOLE\TRIMETHOPRIM
     Indication: PROPHYLAXIS
     Route: 048
     Dates: start: 20180605
  21. TORMENTIOL [Concomitant]
     Indication: SEBORRHOEA
     Route: 062
     Dates: start: 20180614, end: 20180717
  22. CYCLONAMINE [Concomitant]
     Active Substance: ETHAMSYLATE
     Indication: HAEMORRHAGE PROPHYLAXIS
     Route: 048
     Dates: start: 20180622, end: 20180624
  23. MILURIT [Concomitant]
     Active Substance: ALLOPURINOL
     Indication: PROPHYLAXIS
     Route: 048
     Dates: start: 20180605
  24. LOPERAMID [Concomitant]
     Active Substance: LOPERAMIDE
     Route: 048
     Dates: start: 20180614, end: 20180717
  25. COBIMETINIB. [Suspect]
     Active Substance: COBIMETINIB
     Indication: PLASMA CELL MYELOMA
     Dosage: DAY 1-21 OF EACH 28 DAYS CYCLE?ON 22/JUN/2018 AND 19/JUN/2018, THE PATIENT RECEIVED THE MOST RECENT
     Route: 048
     Dates: start: 20180605
  26. KALII CHLORIDUM [Concomitant]
     Indication: BLOOD POTASSIUM DECREASED
     Route: 048
     Dates: start: 20180624, end: 20180626
  27. APIDRA [Concomitant]
     Active Substance: INSULIN GLULISINE
     Indication: DIABETES MELLITUS
     Route: 058
     Dates: start: 2008
  28. OMNIC OCAS [Concomitant]
     Active Substance: TAMSULOSIN HYDROCHLORIDE
     Indication: BENIGN PROSTATIC HYPERPLASIA
     Route: 048
     Dates: start: 2011
  29. METFORMAX [Concomitant]
     Active Substance: METFORMIN HYDROCHLORIDE
     Indication: DIABETES MELLITUS
     Route: 048
     Dates: start: 2008
  30. HEVIRAN [ACICLOVIR] [Concomitant]
     Route: 048
     Dates: start: 20180911, end: 20180913

REACTIONS (5)
  - Febrile neutropenia [Recovered/Resolved]
  - Neutropenia [Recovered/Resolved]
  - Anaemia [Recovered/Resolved]
  - Thrombocytopenia [Not Recovered/Not Resolved]
  - Anaemia [Recovered/Resolved]

NARRATIVE: CASE EVENT DATE: 20180605
